FAERS Safety Report 9200651 (Version 1)
Quarter: 2013Q1

REPORT INFORMATION
  Report Type: Spontaneous
  Country: IT (occurrence: IT)
  Receive Date: 20130331
  Receipt Date: 20130331
  Transmission Date: 20140127
  Serious: Yes (Life-Threatening)
  Sender: FDA-Public Use
  Company Number: IT-TEVA-394388ISR

PATIENT
  Age: 51 Year
  Sex: Male

DRUGS (1)
  1. LEVOFLOXACINA [Suspect]
     Dosage: 500 MILLIGRAM DAILY;
     Route: 048
     Dates: start: 20121212, end: 20121212

REACTIONS (2)
  - Anaphylactic shock [Recovering/Resolving]
  - Hypoperfusion [Recovering/Resolving]
